FAERS Safety Report 23231564 (Version 1)
Quarter: 2023Q4

REPORT INFORMATION
  Report Type: Spontaneous
  Country: US (occurrence: None)
  Receive Date: 20231124
  Receipt Date: 20231124
  Transmission Date: 20240109
  Serious: Yes (Other)
  Sender: FDA-Public Use
  Company Number: None

PATIENT
  Age: 40 Year
  Sex: Female
  Weight: 85.5 kg

DRUGS (3)
  1. VIVITROL [Suspect]
     Active Substance: NALTREXONE
     Indication: Substance use
     Dosage: OTHER QUANTITY : 1 INJECTION(S);?
     Route: 030
  2. be4 the shot [Concomitant]
  3. PREDNISONE [Concomitant]

REACTIONS (2)
  - Lip blister [None]
  - Tongue blistering [None]

NARRATIVE: CASE EVENT DATE: 20230704
